FAERS Safety Report 6209386-9 (Version None)
Quarter: 2009Q2

REPORT INFORMATION
  Report Type: 
  Country: None (occurrence: None)
  Receive Date: 20090529
  Receipt Date: 20090521
  Transmission Date: 20091009
  Serious: Yes (Other)
  Sender: FDA-Public Use
  Company Number: US-GENENTECH-279125

PATIENT
  Sex: Female

DRUGS (10)
  1. XOLAIR [Suspect]
     Indication: ASTHMA
     Dosage: 300 MG, UNK
     Route: 058
  2. PREDNISONE [Concomitant]
     Indication: ASTHMA
     Dosage: 20 MG, QD
     Route: 048
  3. ALBUTEROL [Concomitant]
     Indication: ASTHMA
     Dosage: UNK
     Route: 055
  4. PULMICORT-100 [Concomitant]
     Indication: ASTHMA
     Dosage: 2 PUFF, TID
  5. ADVAIR HFA [Concomitant]
     Indication: ASTHMA
     Dosage: 2 PUFF, QD
  6. VERAMYST [Concomitant]
     Indication: DRUG USE FOR UNKNOWN INDICATION
     Dosage: 2 SPRAYS
  7. NASONEX [Concomitant]
     Indication: DRUG USE FOR UNKNOWN INDICATION
  8. OMEPRAZOLE [Concomitant]
     Indication: GASTROOESOPHAGEAL REFLUX DISEASE
     Dosage: 40 MG, TID
     Route: 048
  9. TRAZODONE HCL [Concomitant]
     Indication: DRUG USE FOR UNKNOWN INDICATION
     Dosage: 50 MG, QD
     Route: 048
  10. ATROVENT [Concomitant]
     Indication: ASTHMA
     Dosage: 1 PUFF, BID

REACTIONS (1)
  - ANAPHYLACTIC REACTION [None]
